FAERS Safety Report 20981795 (Version 4)
Quarter: 2022Q4

REPORT INFORMATION
  Report Type: Report from Study
  Country: SK (occurrence: None)
  Receive Date: 20220620
  Receipt Date: 20221017
  Transmission Date: 20230113
  Serious: Yes (Hospitalization)
  Sender: FDA-Public Use
  Company Number: SK-ROCHE-3086971

PATIENT
  Age: 60 Year
  Sex: Male
  Weight: 84 kg

DRUGS (30)
  1. OCRELIZUMAB [Suspect]
     Active Substance: OCRELIZUMAB
     Indication: Relapsing-remitting multiple sclerosis
     Dosage: FIRST DOSE ADMINISTERED AS DUAL INFUSIONS ON DAY 1 AND DAY 15 OF FIRST 24-WEEK CYCLE (AS PER PROTOCO
     Route: 042
     Dates: start: 20090213
  2. OCRELIZUMAB [Suspect]
     Active Substance: OCRELIZUMAB
     Indication: Relapsing-remitting multiple sclerosis
     Dosage: DATE OF LAST DOSE PRIOR TO AE/SAE: 03/FEB/2022?FIRST DOSE ADMINISTERED AS DUAL INFUSIONS ON DAY 1 AN
     Route: 042
  3. KETONAL (SLOVAKIA) [Concomitant]
     Dates: start: 20220330, end: 20220405
  4. KETONAL (SLOVAKIA) [Concomitant]
     Dates: start: 20220210, end: 20220210
  5. GUAIFENESIN [Concomitant]
     Active Substance: GUAIFENESIN
     Dates: start: 20220330, end: 20220405
  6. GUAIFENESIN [Concomitant]
     Active Substance: GUAIFENESIN
     Route: 042
     Dates: start: 20220427, end: 20220501
  7. PREGABALIN [Concomitant]
     Active Substance: PREGABALIN
     Dates: start: 20220329
  8. DORSIFLEX [Concomitant]
     Dates: start: 20220329, end: 20220426
  9. VINPOCETINE [Concomitant]
     Active Substance: VINPOCETINE
  10. CO-VALSACOR [Concomitant]
     Dosage: 160/25 MG
     Dates: start: 202201
  11. CO-VALSACOR [Concomitant]
     Dosage: 160/25 MG
     Dates: start: 20170110
  12. ASPIRIN [Concomitant]
     Active Substance: ASPIRIN
     Dates: start: 20070711
  13. DICLOFENAC SODIUM\ORPHENADRINE CITRATE [Concomitant]
     Active Substance: DICLOFENAC SODIUM\ORPHENADRINE CITRATE
     Route: 042
     Dates: start: 20220501, end: 20220502
  14. CEFTRIAXONE [Concomitant]
     Active Substance: CEFTRIAXONE
     Dates: start: 20220524, end: 20220527
  15. CLINDAMYCIN PHOSPHATE [Concomitant]
     Active Substance: CLINDAMYCIN PHOSPHATE
     Dates: start: 20220527, end: 20220603
  16. ACETAMINOPHEN [Concomitant]
     Active Substance: ACETAMINOPHEN
     Dates: start: 20220523, end: 20220603
  17. DICLOFENAC SODIUM [Concomitant]
     Active Substance: DICLOFENAC SODIUM
     Dates: start: 20220523, end: 20220603
  18. NADROPARIN CALCIUM [Concomitant]
     Active Substance: NADROPARIN CALCIUM
     Dates: start: 20220523, end: 20220603
  19. CLINDAMYCIN [Concomitant]
     Active Substance: CLINDAMYCIN
     Dates: start: 20220604, end: 20220609
  20. DEXKETOPROFEN\TRAMADOL [Concomitant]
     Active Substance: DEXKETOPROFEN\TRAMADOL
     Dosage: 75/MG/25 MG
     Dates: start: 20220604
  21. DOXYCYCLINE [Concomitant]
     Active Substance: DOXYCYCLINE
     Dates: start: 20220609, end: 20220616
  22. CIPROFLOXACIN [Concomitant]
     Active Substance: CIPROFLOXACIN
     Dates: start: 20220616
  23. PREDNISONE [Concomitant]
     Active Substance: PREDNISONE
     Dates: start: 20220628, end: 20220628
  24. PREDNISONE [Concomitant]
     Active Substance: PREDNISONE
     Dates: start: 20220629, end: 20220725
  25. OPRAZOLE [Concomitant]
  26. SULFASALAZINE [Concomitant]
     Active Substance: SULFASALAZINE
  27. FLAVOBION [Concomitant]
  28. ELMETACIN [Concomitant]
  29. REPARIL [DIETHYLAMINE SALICYLATE;ESCIN] [Concomitant]
     Dates: end: 20220815
  30. METHOTREXATE [Concomitant]
     Active Substance: METHOTREXATE

REACTIONS (2)
  - Back pain [Recovered/Resolved]
  - Arthritis [Recovered/Resolved]

NARRATIVE: CASE EVENT DATE: 20220329
